FAERS Safety Report 9422252 (Version 1)
Quarter: 2013Q3

REPORT INFORMATION
  Report Type: Spontaneous
  Country: US (occurrence: None)
  Receive Date: 20130725
  Receipt Date: 20130725
  Transmission Date: 20140515
  Serious: Yes (Other)
  Sender: FDA-Public Use
  Company Number: None

PATIENT
  Age: 43 Year
  Sex: Female
  Weight: 68.04 kg

DRUGS (2)
  1. LUPRON [Suspect]
     Indication: MUSCLE SPASMS
     Route: 042
     Dates: start: 20080108, end: 20080401
  2. LUPRON [Suspect]
     Indication: HAEMORRHAGE
     Route: 042
     Dates: start: 20080108, end: 20080401

REACTIONS (5)
  - Pain [None]
  - Activities of daily living impaired [None]
  - Insomnia [None]
  - Impaired work ability [None]
  - Drug ineffective [None]
